FAERS Safety Report 10977701 (Version 1)
Quarter: 2015Q2

REPORT INFORMATION
  Report Type: Spontaneous
  Country: US (occurrence: None)
  Receive Date: 20150401
  Receipt Date: 20150401
  Transmission Date: 20150821
  Serious: No
  Sender: FDA-Public Use
  Company Number: None

PATIENT
  Age: 59 Year
  Sex: Female
  Weight: 78.02 kg

DRUGS (9)
  1. PLAQUENIL [Concomitant]
     Active Substance: HYDROXYCHLOROQUINE SULFATE
  2. LUNESTA [Concomitant]
     Active Substance: ESZOPICLONE
  3. MUCINEX [Concomitant]
     Active Substance: GUAIFENESIN
  4. WARFARIN [Concomitant]
     Active Substance: WARFARIN
  5. BUPROPION [Concomitant]
     Active Substance: BUPROPION
  6. REQUIP [Concomitant]
     Active Substance: ROPINIROLE HYDROCHLORIDE
  7. ENBREL [Suspect]
     Active Substance: ETANERCEPT
     Indication: MEDICAL DEVICE IMPLANTATION
     Dates: start: 20111001, end: 20150331
  8. FOLIC ACID. [Concomitant]
     Active Substance: FOLIC ACID
  9. VIIBRYD [Concomitant]
     Active Substance: VILAZODONE HYDROCHLORIDE

REACTIONS (1)
  - International normalised ratio decreased [None]

NARRATIVE: CASE EVENT DATE: 20150329
